FAERS Safety Report 9751550 (Version 2)
Quarter: 2013Q4

REPORT INFORMATION
  Report Type: Spontaneous
  Country: US (occurrence: US)
  Receive Date: 20131212
  Receipt Date: 20131212
  Transmission Date: 20140711
  Serious: Yes (Other)
  Sender: FDA-Public Use
  Company Number: US-NAPPMUNDI-USA-2013-0100375

PATIENT
  Age: 52 Year
  Sex: Male
  Weight: 106.58 kg

DRUGS (1)
  1. DILAUDID TABLET [Suspect]
     Indication: KNEE ARTHROPLASTY
     Dosage: 4 MG, SEE TEXT
     Route: 048
     Dates: start: 20130228

REACTIONS (4)
  - Hallucination [Recovered/Resolved]
  - Nausea [Unknown]
  - Vomiting [Unknown]
  - Confusional state [Recovered/Resolved]
